FAERS Safety Report 26060881 (Version 2)
Quarter: 2025Q4

REPORT INFORMATION
  Report Type: Report from Study
  Country: US (occurrence: US)
  Receive Date: 20251118
  Receipt Date: 20251222
  Transmission Date: 20260117
  Serious: Yes (Other)
  Sender: BIOGEN
  Company Number: US-BIOGEN-2090936

PATIENT
  Age: 26 Year
  Sex: Female

DRUGS (1)
  1. ZURZUVAE [Suspect]
     Active Substance: ZURANOLONE
     Indication: Perinatal depression

REACTIONS (5)
  - Suicidal ideation [Unknown]
  - Sedation [Unknown]
  - Anxiety [Unknown]
  - Feelings of worthlessness [Unknown]
  - Somnolence [Unknown]
